FAERS Safety Report 9880937 (Version 1)
Quarter: 2014Q1

REPORT INFORMATION
  Report Type: Spontaneous
  Country: US (occurrence: US)
  Receive Date: 20140207
  Receipt Date: 20140207
  Transmission Date: 20141002
  Serious: Yes (Death, Other)
  Sender: FDA-Public Use
  Company Number: US-AMGEN-USASP2014007679

PATIENT
  Age: 68 Year
  Sex: Male

DRUGS (3)
  1. SENSIPAR [Suspect]
     Indication: HYPERPARATHYROIDISM SECONDARY
     Dosage: 30 MG, QD
     Route: 048
     Dates: start: 201108
  2. FOSRENOL [Concomitant]
  3. TRAMADOL [Concomitant]
     Dosage: 50 MG, UNK

REACTIONS (3)
  - Cardiac arrest [Fatal]
  - Abasia [Unknown]
  - Limb discomfort [Unknown]
